FAERS Safety Report 9326859 (Version 2)
Quarter: 2013Q3

REPORT INFORMATION
  Report Type: Spontaneous
  Country: US (occurrence: US)
  Receive Date: 20130604
  Receipt Date: 20130723
  Transmission Date: 20140515
  Serious: No
  Sender: FDA-Public Use
  Company Number: US-PFIZER INC-2013165562

PATIENT
  Age: 80 Year
  Sex: Female

DRUGS (12)
  1. PROTONIX [Suspect]
     Indication: GASTROOESOPHAGEAL REFLUX DISEASE
     Dosage: 40 MG, 1X/DAY
     Route: 048
  2. OMEPRAZOLE [Suspect]
     Indication: GASTROOESOPHAGEAL REFLUX DISEASE
     Dosage: 20 MG, 1X/DAY
     Route: 048
     Dates: start: 20120127, end: 20120907
  3. FAMOTIDINE [Suspect]
     Indication: GASTROOESOPHAGEAL REFLUX DISEASE
     Dosage: 20 MG, 2X/DAY
     Route: 048
     Dates: start: 20120907
  4. CREON [Concomitant]
     Dosage: 3 DF, 3X/DAY
     Dates: start: 20110916
  5. LASIX [Concomitant]
     Dosage: 20 MG, 1X/DAY
     Route: 048
     Dates: start: 20110916
  6. NITROGLYCERIN [Concomitant]
     Dosage: 0.4 MG, UNK
     Route: 060
     Dates: start: 20110916
  7. SIMILASAN [Concomitant]
     Dosage: UNK
     Route: 047
     Dates: start: 20110916
  8. SINGULAIR [Concomitant]
     Dosage: 10 MG, 1X/DAY
     Route: 048
     Dates: start: 20110916
  9. XANAX [Concomitant]
     Dosage: 0.25 MG, 2X/DAY
     Route: 048
     Dates: start: 20110916
  10. PAROXETINE [Concomitant]
     Dosage: 1 DF, 1X/DAY
     Route: 048
  11. PEPCID [Concomitant]
     Dosage: 40 MG, AS NEEDED
     Route: 048
  12. NAMENDA [Concomitant]
     Dosage: UNK
     Route: 048

REACTIONS (3)
  - Ocular hyperaemia [Unknown]
  - Rash [Unknown]
  - Osteoarthritis [Unknown]
